FAERS Safety Report 13288988 (Version 4)
Quarter: 2017Q3

REPORT INFORMATION
  Report Type: Spontaneous
  Country: DE (occurrence: DE)
  Receive Date: 20170302
  Receipt Date: 20170714
  Transmission Date: 20171127
  Serious: Yes (Hospitalization)
  Sender: FDA-Public Use
  Company Number: DE-ABBVIE-17P-062-1894326-00

PATIENT
  Age: 82 Year
  Sex: Male

DRUGS (1)
  1. LEUPRORELIN ACETATE [Suspect]
     Active Substance: LEUPROLIDE ACETATE
     Indication: PROSTATE CANCER
     Dosage: 11.25 MG, UNK
     Route: 065

REACTIONS (6)
  - Cardiovascular disorder [Unknown]
  - Back pain [Not Recovered/Not Resolved]
  - Arthralgia [Unknown]
  - Pruritus [Not Recovered/Not Resolved]
  - Dizziness [Unknown]
  - Nocturia [Not Recovered/Not Resolved]

NARRATIVE: CASE EVENT DATE: 201701
